FAERS Safety Report 7688886-9 (Version None)
Quarter: 2011Q3

REPORT INFORMATION
  Report Type: 
  Country: None (occurrence: None)
  Receive Date: 20110817
  Receipt Date: 20110805
  Transmission Date: 20111222
  Serious: Yes (Other)
  Sender: FDA-Public Use
  Company Number: PHHY2011DE72071

PATIENT
  Age: 50 Year
  Sex: Male

DRUGS (1)
  1. IMATINIB MESYLATE [Suspect]
     Indication: CHRONIC EOSINOPHILIC LEUKAEMIA
     Dosage: 400 MG, DAILY

REACTIONS (9)
  - SPLENOMEGALY [None]
  - ANAEMIA [None]
  - THROMBOCYTOPENIA [None]
  - DRUG RESISTANCE [None]
  - LEUKOCYTOSIS [None]
  - LYMPHADENOPATHY [None]
  - ASCITES [None]
  - LEUKAEMIA RECURRENT [None]
  - GENE MUTATION IDENTIFICATION TEST POSITIVE [None]
